FAERS Safety Report 6407399-5 (Version None)
Quarter: 2009Q4

REPORT INFORMATION
  Report Type: 
  Country: None (occurrence: None)
  Receive Date: 20091020
  Receipt Date: 20091009
  Transmission Date: 20100525
  Serious: Yes (Other)
  Sender: FDA-Public Use
  Company Number: GB-JNJCH-2009008758

PATIENT
  Sex: Male

DRUGS (1)
  1. BENGAY PAIN RELIEVING PATCH [Suspect]
     Indication: DRUG USE FOR UNKNOWN INDICATION
     Dosage: TEXT:ONE PATCH (FREQUENCY UNSPECIFIED)
     Route: 061

REACTIONS (1)
  - APPLICATION SITE BURN [None]
